FAERS Safety Report 25101225 (Version 2)
Quarter: 2025Q2

REPORT INFORMATION
  Report Type: Spontaneous
  Country: US (occurrence: US)
  Receive Date: 20250320
  Receipt Date: 20250501
  Transmission Date: 20250717
  Serious: No
  Sender: GILEAD
  Company Number: US-GILEAD-2025-0707857

PATIENT
  Age: 23 Year
  Sex: Male

DRUGS (1)
  1. YESCARTA [Suspect]
     Active Substance: AXICABTAGENE CILOLEUCEL
     Indication: Product used for unknown indication
     Route: 065

REACTIONS (2)
  - COVID-19 [Unknown]
  - Ankle fracture [Unknown]
